FAERS Safety Report 8603770 (Version 2)
Quarter: 2014Q1

REPORT INFORMATION
  Report Type: Spontaneous
  Country: US (occurrence: None)
  Receive Date: 20120323
  Receipt Date: 20140306
  Transmission Date: 20141002
  Serious: Yes (Hospitalization)
  Sender: FDA-Public Use
  Company Number: 163-21880-10112742

PATIENT
  Age: 73 Year
  Sex: Male
  Weight: 63.05 kg

DRUGS (1)
  1. DEXAMETHASONE (DEXAMETHASONE) (UNKNOWN) [Suspect]
     Indication: PLASMA CELL MYELOMA
     Dosage: 10 MG, DAILY X 21 DAYS, PO
     Route: 048

REACTIONS (5)
  - Atrial fibrillation [None]
  - Asthenia [None]
  - Aphonia [None]
  - Dizziness [None]
  - Headache [None]
